FAERS Safety Report 4714401-5 (Version None)
Quarter: 2005Q3

REPORT INFORMATION
  Report Type: 
  Country: None (occurrence: None)
  Receive Date: 20050714
  Receipt Date: 20050704
  Transmission Date: 20060218
  Serious: Yes (Death, Life-Threatening, Hospitalization)
  Sender: FDA-Public Use
  Company Number: FR-GLAXOSMITHKLINE-B0387154A

PATIENT
  Age: 72 Year
  Sex: Male

DRUGS (9)
  1. AUGMENTIN '500' [Suspect]
     Indication: INFLUENZA
     Dosage: 1G TWICE PER DAY
     Route: 048
     Dates: start: 20050207, end: 20050215
  2. DI-ACTANE 200 [Suspect]
     Dosage: 1UNIT TWICE PER DAY
     Route: 048
     Dates: start: 20040715, end: 20050211
  3. ACETAMINOPHEN [Suspect]
     Indication: INFLUENZA
     Dosage: 2TAB VARIABLE DOSE
     Route: 048
     Dates: start: 20050207, end: 20050215
  4. SPIRONOLACTONE [Suspect]
     Indication: ESSENTIAL HYPERTENSION
     Dosage: 2UNIT PER DAY
     Route: 048
     Dates: end: 20050228
  5. ANDROCUR [Suspect]
     Indication: PROSTATE CANCER
     Dosage: 100MG PER DAY
     Route: 048
     Dates: start: 20041115, end: 20050210
  6. ASPEGIC 325 [Suspect]
     Dosage: 100MG PER DAY
     Route: 048
     Dates: start: 20040715, end: 20050225
  7. AMBROXOL [Concomitant]
     Route: 065
     Dates: start: 20050207, end: 20050215
  8. RHINOTROPHYL [Concomitant]
     Route: 065
     Dates: start: 20050207, end: 20050215
  9. ULTRA LEVURE [Concomitant]
     Route: 065
     Dates: start: 20050207, end: 20050215

REACTIONS (17)
  - ALANINE AMINOTRANSFERASE INCREASED [None]
  - ASTHENIA [None]
  - BLOOD ALKALINE PHOSPHATASE INCREASED [None]
  - BLOOD BILIRUBIN INCREASED [None]
  - CHOLESTASIS [None]
  - CHROMATURIA [None]
  - FAECES DISCOLOURED [None]
  - GAMMA-GLUTAMYLTRANSFERASE INCREASED [None]
  - GENERAL PHYSICAL HEALTH DETERIORATION [None]
  - HAEMODYNAMIC INSTABILITY [None]
  - HEPATIC FAILURE [None]
  - HEPATITIS [None]
  - JAUNDICE [None]
  - PROTHROMBIN TIME RATIO ABNORMAL [None]
  - RENAL FAILURE [None]
  - RESPIRATORY FAILURE [None]
  - SEPTIC SHOCK [None]
